FAERS Safety Report 10451507 (Version 4)
Quarter: 2014Q4

REPORT INFORMATION
  Report Type: Spontaneous
  Country: JP (occurrence: JP)
  Receive Date: 20140913
  Receipt Date: 20141126
  Transmission Date: 20150528
  Serious: Yes (Hospitalization)
  Sender: FDA-Public Use
  Company Number: PHHY2014JP102409

PATIENT
  Age: 34 Year
  Sex: Male

DRUGS (4)
  1. GILENYA [Suspect]
     Active Substance: FINGOLIMOD HYDROCHLORIDE
     Dosage: 0.5 MG, QD
     Route: 048
     Dates: start: 20140813, end: 20140916
  2. GILENYA [Suspect]
     Active Substance: FINGOLIMOD HYDROCHLORIDE
     Dosage: 0.5 MG, QOD
     Route: 048
     Dates: start: 20140917
  3. GILENYA [Suspect]
     Active Substance: FINGOLIMOD HYDROCHLORIDE
     Indication: MULTIPLE SCLEROSIS
     Dosage: 0.5 MG, QD
     Route: 048
     Dates: start: 20140811, end: 20140812
  4. DOPAMINE HYCROCHLORIDE [Suspect]
     Active Substance: DOPAMINE HYDROCHLORIDE
     Indication: BRADYCARDIA
     Dosage: 5 MG/H, UNK
     Route: 041
     Dates: start: 20140811, end: 20140812

REACTIONS (9)
  - Bradycardia [Recovering/Resolving]
  - Headache [Recovering/Resolving]
  - Vomiting [Recovering/Resolving]
  - Abdominal discomfort [Not Recovered/Not Resolved]
  - Atrioventricular block second degree [Recovering/Resolving]
  - Dyspnoea [Recovering/Resolving]
  - Blood pressure decreased [Unknown]
  - Prescribed underdose [Unknown]
  - Nausea [Not Recovered/Not Resolved]

NARRATIVE: CASE EVENT DATE: 20140811
